FAERS Safety Report 7399218-8 (Version None)
Quarter: 2011Q2

REPORT INFORMATION
  Report Type: 
  Country: None (occurrence: None)
  Receive Date: 20110407
  Receipt Date: 20110405
  Transmission Date: 20111010
  Serious: Yes (Other)
  Sender: FDA-Public Use
  Company Number: US-AMGEN-QUU438107

PATIENT
  Age: 68 Year
  Sex: Male
  Weight: 97 kg

DRUGS (7)
  1. NPLATE [Suspect]
     Indication: IDIOPATHIC THROMBOCYTOPENIC PURPURA
     Dosage: UNK UNK, QWK
     Route: 058
     Dates: start: 20100407
  2. LASIX [Concomitant]
  3. MELOXICAM [Concomitant]
  4. LISINOPRIL [Concomitant]
  5. NPLATE [Suspect]
  6. ETODOLAC [Concomitant]
  7. SIMVASTATIN [Concomitant]

REACTIONS (1)
  - OEDEMA PERIPHERAL [None]
